FAERS Safety Report 21683126 (Version 2)
Quarter: 2022Q4

REPORT INFORMATION
  Report Type: Report from Study
  Country: GB (occurrence: GB)
  Receive Date: 20221205
  Receipt Date: 20221216
  Transmission Date: 20230113
  Serious: Yes (Death, Other)
  Sender: FDA-Public Use
  Company Number: GB-PFIZER INC-202201345482

PATIENT

DRUGS (4)
  1. OXALIPLATIN [Suspect]
     Active Substance: OXALIPLATIN
     Indication: Rectal cancer
     Dosage: 130 MG/M2, CYCLIC (ON DAY 1; 4 CYCLES), EVERY 3 WEEKS
  2. CAPECITABINE [Suspect]
     Active Substance: CAPECITABINE
     Indication: Rectal cancer
     Dosage: 1000 MG/M2, 2X/DAY, 14DAYS EVERY 3 WEEKS
  3. CAPECITABINE [Suspect]
     Active Substance: CAPECITABINE
     Dosage: 1650 MG/M2, DAILY, CONTINUOUSLY WITHOUT INTERRUPTION
  4. CAPECITABINE [Suspect]
     Active Substance: CAPECITABINE
     Dosage: 2500 MG/M2, DAILY, FOR 14 DAYS FOLLOWED BY 7 DAYS OF REST.

REACTIONS (1)
  - Myocardial infarction [Fatal]
